FAERS Safety Report 25531694 (Version 1)
Quarter: 2025Q3

REPORT INFORMATION
  Report Type: Spontaneous
  Country: AU (occurrence: AU)
  Receive Date: 20250709
  Receipt Date: 20250709
  Transmission Date: 20251021
  Serious: Yes (Life-Threatening, Hospitalization)
  Sender: ACCORD
  Company Number: AU-MLMSERVICE-20250623-PI552796-00082-1

PATIENT
  Age: 17 Year
  Sex: Female

DRUGS (11)
  1. CARBOPLATIN [Suspect]
     Active Substance: CARBOPLATIN
     Indication: Astrocytoma, low grade
     Dosage: CUMULATIVELY RECEIVING APPROXIMATELY 7 G/M2 OF CARBOPLATIN.
  2. LOMUSTINE [Suspect]
     Active Substance: LOMUSTINE
     Indication: Astrocytoma, low grade
  3. PROCARBAZINE [Suspect]
     Active Substance: PROCARBAZINE
     Indication: Astrocytoma, low grade
  4. VINCRISTINE [Suspect]
     Active Substance: VINCRISTINE
     Indication: Astrocytoma, low grade
     Dosage: COG A9952 REGIMEN A PROTOCOL, COMPLETING TREATMENT AT AGE 5.
  5. THIOGUANINE [Suspect]
     Active Substance: THIOGUANINE
     Indication: Astrocytoma, low grade
  6. PROCARBAZINE [Suspect]
     Active Substance: PROCARBAZINE
     Indication: Disease progression
  7. LOMUSTINE [Suspect]
     Active Substance: LOMUSTINE
     Indication: Disease progression
  8. VINCRISTINE [Suspect]
     Active Substance: VINCRISTINE
     Indication: Astrocytoma, low grade
     Dosage: COG A9952 REGIMEN B PROTOCOL
  9. VINCRISTINE [Suspect]
     Active Substance: VINCRISTINE
     Indication: Disease progression
     Dosage: COG A9952 REGIMEN A PROTOCOL, COMPLETING TREATMENT AT AGE 5.
  10. VINCRISTINE [Suspect]
     Active Substance: VINCRISTINE
     Indication: Disease progression
     Dosage: COG A9952 REGIMEN B PROTOCOL
  11. THIOGUANINE [Suspect]
     Active Substance: THIOGUANINE
     Indication: Disease progression

REACTIONS (2)
  - Myelodysplastic syndrome [Unknown]
  - Off label use [Unknown]

NARRATIVE: CASE EVENT DATE: 20230301
